FAERS Safety Report 22125731 (Version 2)
Quarter: 2023Q1

REPORT INFORMATION
  Report Type: Spontaneous
  Country: FR (occurrence: None)
  Receive Date: 20230322
  Receipt Date: 20230330
  Transmission Date: 20230418
  Serious: Yes (Other)
  Sender: FDA-Public Use
  Company Number: FR-ROCHE-3313098

PATIENT
  Age: 73 Year
  Sex: Female
  Weight: 59 kg

DRUGS (3)
  1. HERCEPTIN [Suspect]
     Active Substance: TRASTUZUMAB
     Indication: Breast cancer
     Route: 065
     Dates: start: 20221116
  2. XELODA [Suspect]
     Active Substance: CAPECITABINE
     Indication: Breast cancer
     Dosage: XELODA 1500 MG MORNING AND EVENING; REATMENT RENEWED: XELODA 1000 MG MORNING AND EVENING FROM DAY1 (
     Route: 048
     Dates: start: 20221116
  3. TUKYSA [Suspect]
     Active Substance: TUCATINIB
     Indication: Breast cancer
     Dosage: 300 MG AT MORNING AND EVENING
     Route: 065
     Dates: start: 20221116

REACTIONS (13)
  - Hyperbilirubinaemia [Recovering/Resolving]
  - Lymphopenia [Recovering/Resolving]
  - Blood lactate dehydrogenase increased [Unknown]
  - Gamma-glutamyltransferase increased [Unknown]
  - Cell death [Recovering/Resolving]
  - Carcinoembryonic antigen increased [Unknown]
  - Aortic valve incompetence [Unknown]
  - Cell death [Recovering/Resolving]
  - Aortic valve incompetence [Recovering/Resolving]
  - Fatigue [Recovering/Resolving]
  - Palmar-plantar erythrodysaesthesia syndrome [Recovering/Resolving]
  - Diarrhoea [Recovering/Resolving]
  - Aortic valve incompetence [Recovering/Resolving]
